FAERS Safety Report 24645897 (Version 1)
Quarter: 2024Q4

REPORT INFORMATION
  Report Type: Spontaneous
  Country: GB (occurrence: GB)
  Receive Date: 20241121
  Receipt Date: 20241121
  Transmission Date: 20250115
  Serious: Yes (Hospitalization, Disabling, Other)
  Sender: AUROBINDO
  Company Number: GB-MLMSERVICE-20241101-PI248295-00080-1

PATIENT
  Sex: Female

DRUGS (9)
  1. RASAGILINE MESYLATE [Suspect]
     Active Substance: RASAGILINE MESYLATE
     Indication: Parkinson^s disease
     Dosage: 1 MILLIGRAM, ONCE A DAY (ONE TABLET ONCE DAILY)
     Route: 065
  2. STALEVO [Suspect]
     Active Substance: CARBIDOPA\ENTACAPONE\LEVODOPA
     Indication: Parkinson^s disease
     Dosage: 1 DOSAGE FORM, 4.8 HR (STALEVO (LEVODOPA, CARBIDOPA, AND ENTACAPONE) 150/37.5/200 MG, ONE TABLET FIV
     Route: 065
  3. CARBIDOPA\LEVODOPA [Suspect]
     Active Substance: CARBIDOPA\LEVODOPA
     Indication: Parkinson^s disease
     Dosage: 1 DOSAGE FORM, TWO TIMES A DAY ((CO-CARELDOPA) 50/200 MG, ONE TABLET TWICE PER DAY)
     Route: 065
  4. CARBIDOPA\LEVODOPA [Suspect]
     Active Substance: CARBIDOPA\LEVODOPA
     Indication: Parkinson^s disease
     Dosage: 250 MILLIGRAM, TWO TIMES A DAY ((CO-CARELDOPA) 125 MG (25/100 MG), TWO TABLETS TWICE PER DAY)
     Route: 065
  5. BENSERAZIDE HYDROCHLORIDE\LEVODOPA [Suspect]
     Active Substance: BENSERAZIDE HYDROCHLORIDE\LEVODOPA
     Indication: Parkinson^s disease
     Dosage: 62.5 MILLIGRAM, FOUR TIMES/DAY (MADOPAR (CO-BENELDOPA) DISPERSIBLE 62.5 MG (12.5/50 MG), ONE TABLET
     Route: 065
  6. BENSERAZIDE HYDROCHLORIDE\LEVODOPA [Suspect]
     Active Substance: BENSERAZIDE HYDROCHLORIDE\LEVODOPA
     Indication: Analgesic therapy
  7. PRAMIPEXOLE [Suspect]
     Active Substance: PRAMIPEXOLE\PRAMIPEXOLE DIHYDROCHLORIDE
     Indication: Parkinson^s disease
     Dosage: 2.1 MILLIGRAM, ONCE A DAY (PRAMIPEXOLE (MIRAPEXIN) PROLONGED-RELEASE 2.1 MG, ONE TABLET ONCE DAILY)
     Route: 065
  8. AMANTADINE [Suspect]
     Active Substance: AMANTADINE
     Indication: Parkinson^s disease
     Dosage: 100 MILLIGRAM, ONCE A DAY (AMANTADINE 100 MG, ONE TABLET ONCE DAILY)
     Route: 065
  9. PRAMIPEXOLE [Concomitant]
     Active Substance: PRAMIPEXOLE\PRAMIPEXOLE DIHYDROCHLORIDE
     Indication: Parkinson^s disease
     Dosage: UNK
     Route: 065

REACTIONS (5)
  - Dystonia [Unknown]
  - Dopamine dysregulation syndrome [Recovering/Resolving]
  - Neck pain [Unknown]
  - Intentional overdose [Recovered/Resolved]
  - Intentional product misuse [Recovered/Resolved]
